FAERS Safety Report 11958779 (Version 1)
Quarter: 2016Q1

REPORT INFORMATION
  Report Type: Spontaneous
  Country: US (occurrence: US)
  Receive Date: 20160126
  Receipt Date: 20160126
  Transmission Date: 20160526
  Serious: Yes (Other)
  Sender: FDA-Public Use
  Company Number: US-ASTRAZENECA-2015SF24461

PATIENT
  Age: 52 Year
  Sex: Female
  Weight: 69.8 kg

DRUGS (21)
  1. MELATONIN [Concomitant]
     Active Substance: MELATONIN
     Indication: SLEEP DISORDER
     Route: 048
  2. INFLUENZA VACCINE [Concomitant]
     Active Substance: INFLUENZA VIRUS VACCINE
     Route: 030
     Dates: start: 20151024
  3. VITMIN B12 [Concomitant]
     Indication: METABOLIC DISORDER
     Dosage: 1 TO 2 CHEWABLES PER DAY.
     Route: 048
  4. CLONAZEPAM. [Concomitant]
     Active Substance: CLONAZEPAM
     Indication: ANXIETY
     Dosage: 0.5 MG 1-2 TABS ORALLY AN HOUR BEFORE SLEEP
     Route: 048
  5. PROCHLORPERAZINE. [Concomitant]
     Active Substance: PROCHLORPERAZINE
     Indication: VOMITING
     Dosage: 10 MG EVERY SIX HOURS AS NEEDED
     Route: 048
  6. INFLUENZA VACCINE [Concomitant]
     Active Substance: INFLUENZA VIRUS VACCINE
     Route: 030
     Dates: start: 20151012
  7. MELATONIN [Concomitant]
     Active Substance: MELATONIN
     Indication: BLOOD COUNT
     Route: 048
  8. ZOFRAN [Concomitant]
     Active Substance: ONDANSETRON HYDROCHLORIDE
     Indication: VOMITING
     Route: 048
  9. VITAMIN D3 [Concomitant]
     Active Substance: CHOLECALCIFEROL
     Indication: BONE DISORDER
     Route: 048
  10. VITAMIN D3 [Concomitant]
     Active Substance: CHOLECALCIFEROL
     Indication: IMMUNE SYSTEM DISORDER
     Route: 048
  11. LYNPARZA [Suspect]
     Active Substance: OLAPARIB
     Route: 048
     Dates: start: 20150922, end: 20151004
  12. INOSITOL [Concomitant]
     Active Substance: INOSITOL
     Indication: ANXIETY
     Dosage: 1 TSP 2 TIMES A DAY
  13. MELATONIN [Concomitant]
     Active Substance: MELATONIN
     Indication: IMMUNE SYSTEM DISORDER
     Route: 048
  14. DOCUSATE SODIUM. [Concomitant]
     Active Substance: DOCUSATE SODIUM
     Route: 048
  15. CRANBERRY. [Concomitant]
     Active Substance: CRANBERRY
     Route: 048
  16. ZOFRAN [Concomitant]
     Active Substance: ONDANSETRON HYDROCHLORIDE
     Indication: NAUSEA
     Route: 048
  17. VITMIN B12 [Concomitant]
     Indication: RED BLOOD CELL COUNT
     Dosage: 1 TO 2 CHEWABLES PER DAY.
     Route: 048
  18. INOSITOL [Concomitant]
     Active Substance: INOSITOL
     Indication: SLEEP DISORDER
     Dosage: 1 TSP 2 TIMES A DAY
  19. MAGNESIUM OXIDE. [Concomitant]
     Active Substance: MAGNESIUM OXIDE
     Route: 048
  20. PROCHLORPERAZINE. [Concomitant]
     Active Substance: PROCHLORPERAZINE
     Indication: NAUSEA
     Dosage: 10 MG EVERY SIX HOURS AS NEEDED
     Route: 048
  21. CALCIUM [Concomitant]
     Active Substance: CALCIUM
     Dosage: 0.2 GUMMIEA ONCE A DAY

REACTIONS (4)
  - Headache [Recovered/Resolved]
  - Amnesia [Unknown]
  - Disturbance in attention [Unknown]
  - Haemoglobin decreased [Recovered/Resolved]

NARRATIVE: CASE EVENT DATE: 20150922
